FAERS Safety Report 9739476 (Version 2)
Quarter: 2014Q1

REPORT INFORMATION
  Report Type: Report from Study
  Country: US (occurrence: US)
  Receive Date: 20131209
  Receipt Date: 20140107
  Transmission Date: 20141002
  Serious: Yes (Death, Hospitalization, Other)
  Sender: FDA-Public Use
  Company Number: US-VERTEX PHARMACEUTICALS INC-2013-011616

PATIENT
  Age: 41 Year
  Sex: Female

DRUGS (18)
  1. VX-770 [Suspect]
     Indication: CYSTIC FIBROSIS
     Dosage: 150 MG, BID
     Dates: start: 20120411, end: 20130907
  2. INSULIN [Concomitant]
     Dosage: UNK, QID
     Route: 058
  3. PAROXETINE [Concomitant]
     Dosage: 40 MG, QD
     Route: 048
  4. ALBUTEROL [Concomitant]
     Dosage: 3 ML, BID
  5. AMLODIPINE [Concomitant]
     Dosage: 10 MG, QD
     Route: 048
  6. AZITHROMYCIN [Concomitant]
     Dosage: 500 MG, QOD
  7. CLONIDINE [Concomitant]
     Dosage: 0.2 MG, BID
     Route: 048
  8. DOCUSATE [Concomitant]
     Dosage: 50 MG, BID
     Route: 048
  9. DORNASE ALFA [Concomitant]
     Dosage: 2.5 ML, QD
  10. GABAPENTIN [Concomitant]
     Dosage: 200 MG, BID
     Route: 048
  11. INSULIN ISOPHANE [Concomitant]
     Dosage: 15 DF, BID
     Route: 058
  12. MULTIVITAMIN [Concomitant]
     Dosage: 1 DF, QD
  13. PANCRELIPASE [Concomitant]
     Dosage: 1 DF, TID
     Route: 048
  14. PANTOPRAZOLE [Concomitant]
     Dosage: 40 MG, QD
     Route: 048
  15. PREDNISONE [Concomitant]
     Dosage: 1 DF, QOD
  16. PROMETHAZINE [Concomitant]
     Dosage: 25 MG, TID
     Route: 048
  17. SEVELAMER [Concomitant]
     Dosage: 2400 MG, TID
     Route: 048
  18. LEVOPHED [Concomitant]

REACTIONS (19)
  - Multi-organ failure [Unknown]
  - Respiratory failure [Fatal]
  - Sepsis [Fatal]
  - Lactic acidosis [Fatal]
  - Metabolic acidosis [Unknown]
  - Hyperkalaemia [Unknown]
  - Encephalopathy [Unknown]
  - Pericardial effusion [Unknown]
  - Ascites [Unknown]
  - Intestinal ischaemia [Unknown]
  - Peripancreatic varices [Unknown]
  - Lymphadenopathy [Unknown]
  - Bile duct obstruction [Unknown]
  - Blood alkaline phosphatase increased [Unknown]
  - Hypoglycaemia [Unknown]
  - Blood albumin decreased [Unknown]
  - International normalised ratio increased [Unknown]
  - Fatigue [Unknown]
  - Lethargy [Unknown]
